FAERS Safety Report 9279520 (Version 1)
Quarter: 2013Q2

REPORT INFORMATION
  Report Type: Spontaneous
  Country: DE (occurrence: DE)
  Receive Date: 20130509
  Receipt Date: 20130509
  Transmission Date: 20140414
  Serious: Yes (Death)
  Sender: FDA-Public Use
  Company Number: DE-ROCHE-1222347

PATIENT
  Age: 51 Year
  Sex: Male
  Weight: 80 kg

DRUGS (2)
  1. PEGASYS [Suspect]
     Indication: HEPATITIS C
     Route: 058
     Dates: start: 20130310, end: 20130325
  2. COPEGUS [Suspect]
     Indication: HEPATITIS C
     Route: 048
     Dates: start: 20130310, end: 20130325

REACTIONS (5)
  - Neutropenia [Fatal]
  - Septic shock [Fatal]
  - Thrombocytopenia [Fatal]
  - Peritonitis bacterial [Fatal]
  - Neutropenic colitis [Fatal]
